FAERS Safety Report 23649670 (Version 1)
Quarter: 2024Q1

REPORT INFORMATION
  Report Type: Spontaneous
  Country: US (occurrence: US)
  Receive Date: 20240319
  Receipt Date: 20240319
  Transmission Date: 20240409
  Serious: Yes (Other)
  Sender: FDA-Public Use
  Company Number: US-ABBVIE-5678920

PATIENT
  Sex: Female

DRUGS (1)
  1. BOTOX [Suspect]
     Active Substance: ONABOTULINUMTOXINA
     Indication: Product used for unknown indication
     Dosage: TIME INTERVAL: AS NECESSARY
     Route: 065

REACTIONS (68)
  - Suicidal ideation [Unknown]
  - Generalised anxiety disorder [Unknown]
  - Depression [Unknown]
  - Emotional disorder [Unknown]
  - Confusional state [Unknown]
  - Irritability [Unknown]
  - Brain fog [Unknown]
  - Electric shock sensation [Unknown]
  - Dizziness [Unknown]
  - Paralysis [Unknown]
  - Vision blurred [Unknown]
  - Blindness [Unknown]
  - Dry eye [Unknown]
  - Eyelid ptosis [Unknown]
  - Decreased appetite [Unknown]
  - Constipation [Unknown]
  - Diarrhoea [Unknown]
  - Gastrointestinal disorder [Unknown]
  - Vomiting [Unknown]
  - Nausea [Unknown]
  - Tension headache [Unknown]
  - Ear discomfort [Unknown]
  - Tinnitus [Unknown]
  - Nervousness [Unknown]
  - Cerebrovascular accident [Unknown]
  - Panic attack [Unknown]
  - Brain hypoxia [Unknown]
  - Drug hypersensitivity [Unknown]
  - Food allergy [Unknown]
  - Photosensitivity reaction [Unknown]
  - Adrenal disorder [Unknown]
  - Thyroid disorder [Unknown]
  - Hypersensitivity [Unknown]
  - Muscle atrophy [Unknown]
  - Neuralgia [Unknown]
  - Facial pain [Unknown]
  - Poor quality sleep [Unknown]
  - Terminal insomnia [Unknown]
  - Insomnia [Unknown]
  - Dry skin [Unknown]
  - Hormone level abnormal [Unknown]
  - Bladder disorder [Unknown]
  - Dyspnoea [Unknown]
  - Hypoaesthesia [Unknown]
  - Trigeminal nerve disorder [Unknown]
  - Muscle twitching [Unknown]
  - Blepharospasm [Unknown]
  - Joint stiffness [Unknown]
  - Musculoskeletal stiffness [Unknown]
  - Pain in jaw [Unknown]
  - Respiratory disorder [Unknown]
  - Formication [Unknown]
  - Muscle spasms [Unknown]
  - Loss of libido [Unknown]
  - Alopecia [Unknown]
  - Heart rate irregular [Unknown]
  - Palpitations [Unknown]
  - Vertigo [Unknown]
  - Pruritus [Unknown]
  - Mouth ulceration [Unknown]
  - Oral discomfort [Unknown]
  - Dry mouth [Unknown]
  - Depersonalisation/derealisation disorder [Unknown]
  - Ileus paralytic [Unknown]
  - Hyperacusis [Unknown]
  - Bruxism [Unknown]
  - Skin exfoliation [Unknown]
  - Dyskinesia [Unknown]
